FAERS Safety Report 14761282 (Version 1)
Quarter: 2018Q2

REPORT INFORMATION
  Report Type: Spontaneous
  Country: ES (occurrence: ES)
  Receive Date: 20180415
  Receipt Date: 20180415
  Transmission Date: 20180711
  Serious: Yes (Other)
  Sender: FDA-Public Use
  Company Number: PHHY2018ES061534

PATIENT
  Age: 58 Year
  Sex: Female

DRUGS (1)
  1. LEVOFLOXACIN. [Suspect]
     Active Substance: LEVOFLOXACIN
     Indication: RESPIRATORY TRACT INFECTION
     Route: 065

REACTIONS (4)
  - Vasospasm [Recovered/Resolved]
  - Electrocardiogram ST segment elevation [Recovering/Resolving]
  - Kounis syndrome [Recovering/Resolving]
  - Anaphylactic reaction [Recovering/Resolving]
